FAERS Safety Report 9336825 (Version 2)
Quarter: 2013Q2

REPORT INFORMATION
  Report Type: Spontaneous
  Country: DE (occurrence: JP)
  Receive Date: 20130607
  Receipt Date: 20130618
  Transmission Date: 20140414
  Serious: Yes (Disabling)
  Sender: FDA-Public Use
  Company Number: JP-FRI-1000045748

PATIENT
  Age: 81 Year
  Sex: Female

DRUGS (3)
  1. MEMANTINE [Suspect]
     Indication: DEMENTIA ALZHEIMER^S TYPE
     Dosage: 5 MG
     Route: 048
     Dates: start: 20130404, end: 20130501
  2. MEMANTINE [Suspect]
     Indication: DEMENTIA ALZHEIMER^S TYPE
     Dosage: 10 MG
     Route: 048
     Dates: start: 20130502, end: 20130507
  3. YOKUKANSAN [Concomitant]
     Indication: DEMENTIA ALZHEIMER^S TYPE
     Dosage: 2.5 GRAM
     Route: 048
     Dates: start: 20130502

REACTIONS (1)
  - Gait disturbance [Recovered/Resolved]
